FAERS Safety Report 9683996 (Version 1)
Quarter: 2013Q4

REPORT INFORMATION
  Report Type: Spontaneous
  Country: JP (occurrence: JP)
  Receive Date: 20131112
  Receipt Date: 20131112
  Transmission Date: 20140711
  Serious: Yes (Hospitalization)
  Sender: FDA-Public Use
  Company Number: JP-ABBVIE-13P-087-1166460-00

PATIENT
  Age: 67 Year
  Sex: Female

DRUGS (2)
  1. CLARITHROMYCIN [Suspect]
     Indication: UPPER RESPIRATORY TRACT INFECTION
  2. MITIGLINIDE [Concomitant]
     Indication: DIABETES MELLITUS

REACTIONS (1)
  - Enterocolitis haemorrhagic [Recovered/Resolved]
